FAERS Safety Report 5812396-4 (Version None)
Quarter: 2008Q3

REPORT INFORMATION
  Report Type: 
  Country: None (occurrence: None)
  Receive Date: 20080711
  Receipt Date: 20080702
  Transmission Date: 20090109
  Serious: Yes (Disabling)
  Sender: FDA-Public Use
  Company Number: OSCN-NO-0604S-0091

PATIENT
  Age: 51 Year
  Sex: Female

DRUGS (1)
  1. OMNISCAN [Suspect]
     Indication: DRUG USE FOR UNKNOWN INDICATION
     Dosage: 35 ML, SINGLE DOSE, I.V.
     Route: 042
     Dates: start: 20050513, end: 20050513

REACTIONS (4)
  - LUNG INFECTION [None]
  - NEPHROGENIC SYSTEMIC FIBROSIS [None]
  - POST PROCEDURAL COMPLICATION [None]
  - RENAL TRANSPLANT [None]
